FAERS Safety Report 21958211 (Version 1)
Quarter: 2023Q1

REPORT INFORMATION
  Report Type: Spontaneous
  Country: PL (occurrence: PL)
  Receive Date: 20230206
  Receipt Date: 20230206
  Transmission Date: 20230418
  Serious: Yes (Life-Threatening)
  Sender: FDA-Public Use
  Company Number: None

PATIENT
  Age: 59 Year
  Sex: Male
  Weight: 70 kg

DRUGS (2)
  1. ULTRAVIST [Suspect]
     Active Substance: IOPROMIDE
     Indication: Computerised tomogram abdomen
     Dosage: 0.7 ML/KG, ONCE
     Route: 042
     Dates: start: 20220823, end: 20220823
  2. ULTRAVIST [Suspect]
     Active Substance: IOPROMIDE
     Indication: Computerised tomogram thorax

REACTIONS (8)
  - Hyperhidrosis [Unknown]
  - Throat irritation [Unknown]
  - Disorientation [Unknown]
  - Dyspnoea [Unknown]
  - Depressed level of consciousness [Unknown]
  - Restlessness [Unknown]
  - Agitation [Unknown]
  - Chest pain [Unknown]
